FAERS Safety Report 18153186 (Version 2)
Quarter: 2020Q3

REPORT INFORMATION
  Report Type: Report from Study
  Country: AU (occurrence: AU)
  Receive Date: 20200815
  Receipt Date: 20200824
  Transmission Date: 20201103
  Serious: Yes (Death, Hospitalization, Other)
  Sender: FDA-Public Use
  Company Number: AU-ACTELION-A-CH2020-208345

PATIENT
  Weight: 40 kg

DRUGS (3)
  1. NORETHISTERONE [Concomitant]
     Active Substance: NORETHINDRONE
     Dosage: 5 MG, QD
     Route: 048
  2. TRACLEER [Suspect]
     Active Substance: BOSENTAN
     Indication: PULMONARY ARTERIAL HYPERTENSION
     Dosage: 62.5 MG, BID
     Route: 048
     Dates: start: 201804, end: 20200721
  3. SILDENAFIL. [Concomitant]
     Active Substance: SILDENAFIL
     Indication: PULMONARY ARTERIAL HYPERTENSION
     Dosage: 25 MG, TID
     Route: 048
     Dates: start: 201611, end: 20200221

REACTIONS (7)
  - General physical health deterioration [Unknown]
  - Parainfluenzae virus infection [Fatal]
  - Pulmonary hypertension [Fatal]
  - Lower respiratory tract infection [Unknown]
  - Nervous system disorder [Unknown]
  - Cardiac arrest [Unknown]
  - Brain death [Unknown]
